FAERS Safety Report 9250776 (Version 2)
Quarter: 2013Q3

REPORT INFORMATION
  Report Type: Spontaneous
  Country: US (occurrence: US)
  Receive Date: 20130424
  Receipt Date: 20130806
  Transmission Date: 20140515
  Serious: Yes (Hospitalization, Other)
  Sender: FDA-Public Use
  Company Number: US-BAYER-2013-050228

PATIENT
  Age: 42 Year
  Sex: Female
  Weight: 61.22 kg

DRUGS (10)
  1. YAZ [Suspect]
     Indication: UTERINE SPASM
     Dosage: UNK
     Dates: start: 2009, end: 201006
  2. YAZ [Suspect]
     Indication: MENORRHAGIA
  3. GIANVI [Suspect]
     Dosage: UNK
     Dates: start: 201006, end: 20110705
  4. CIPROFLOXACIN [Concomitant]
     Dosage: 500 MG, UNK
     Dates: start: 20110515
  5. NITROFURANTOIN [Concomitant]
     Dosage: 100 MG, UNK
     Dates: start: 20110524
  6. MACROBID [Concomitant]
  7. MAXALT [Concomitant]
  8. CYMBALTA [Concomitant]
  9. IMITREX [Concomitant]
  10. LOVENOX [Concomitant]
     Indication: DEEP VEIN THROMBOSIS

REACTIONS (9)
  - Deep vein thrombosis [None]
  - Thrombophlebitis superficial [None]
  - Thrombophlebitis superficial [None]
  - Injury [None]
  - Pain [None]
  - General physical health deterioration [None]
  - Emotional distress [None]
  - Anxiety [None]
  - Pain [None]
